FAERS Safety Report 14057792 (Version 5)
Quarter: 2018Q2

REPORT INFORMATION
  Report Type: Report from Study
  Country: CA (occurrence: CA)
  Receive Date: 20171006
  Receipt Date: 20180614
  Transmission Date: 20180711
  Serious: Yes (Hospitalization, Other)
  Sender: FDA-Public Use
  Company Number: CA-GLAXOSMITHKLINE-CA2017GSK149373

PATIENT
  Age: 58 Year
  Sex: Female

DRUGS (3)
  1. MEPOLIZUMAB [Suspect]
     Active Substance: MEPOLIZUMAB
     Dosage: 100 MG, Z
     Route: 042
  2. MEPOLIZUMAB [Suspect]
     Active Substance: MEPOLIZUMAB
     Dosage: 100 MG, Z
     Route: 042
  3. MEPOLIZUMAB [Suspect]
     Active Substance: MEPOLIZUMAB
     Indication: ASTHMA
     Dosage: 100 MG, Z
     Route: 042

REACTIONS (13)
  - Lung infection [Unknown]
  - Dyspnoea exertional [Unknown]
  - Infection [Unknown]
  - Eye discharge [Unknown]
  - Speech disorder [Recovering/Resolving]
  - Asthma [Recovering/Resolving]
  - Ill-defined disorder [Unknown]
  - Fatigue [Unknown]
  - Cough [Unknown]
  - Malaise [Unknown]
  - Feeling hot [Unknown]
  - Dyspnoea [Unknown]
  - Secretion discharge [Unknown]

NARRATIVE: CASE EVENT DATE: 20170922
